FAERS Safety Report 7006255-1 (Version None)
Quarter: 2010Q3

REPORT INFORMATION
  Report Type: 
  Country: None (occurrence: None)
  Receive Date: 20100921
  Receipt Date: 20100830
  Transmission Date: 20110219
  Serious: No
  Sender: FDA-Public Use
  Company Number: US-PFIZER INC-2010109807

PATIENT
  Sex: Male
  Weight: 74.8 kg

DRUGS (3)
  1. AZITHROMYCIN [Suspect]
     Indication: OROPHARYNGEAL PAIN
     Dosage: 250 MG, 2X/DAY
     Route: 048
     Dates: start: 20100820, end: 20100820
  2. AZITHROMYCIN [Suspect]
     Indication: SINUSITIS
     Dosage: 250 MG, 1X/DAY
     Route: 048
     Dates: start: 20100821, end: 20100824
  3. AZITHROMYCIN [Suspect]
     Indication: COUGH

REACTIONS (3)
  - PRURITUS [None]
  - RASH [None]
  - URTICARIA [None]
